FAERS Safety Report 21869807 (Version 13)
Quarter: 2024Q1

REPORT INFORMATION
  Report Type: Report from Study
  Country: NL (occurrence: NL)
  Receive Date: 20230117
  Receipt Date: 20240219
  Transmission Date: 20240410
  Serious: Yes (Hospitalization, Other)
  Sender: FDA-Public Use
  Company Number: NL-ABBVIE-4270356

PATIENT
  Sex: Male

DRUGS (15)
  1. CARBIDOPA\LEVODOPA [Suspect]
     Active Substance: CARBIDOPA\LEVODOPA
     Indication: Parkinson^s disease
     Dosage: MD: 8.0ML; CD: 3.9ML/H; ED: 1.5ML; CND: 2.3ML/H, DURATION TEXT: REMAINS AT 24 HOURS
     Route: 050
     Dates: start: 20231102, end: 20231211
  2. CARBIDOPA\LEVODOPA [Suspect]
     Active Substance: CARBIDOPA\LEVODOPA
     Dosage: DURATION TEXT: REMAINS AT 24 HOURS
     Route: 050
  3. CARBIDOPA\LEVODOPA [Suspect]
     Active Substance: CARBIDOPA\LEVODOPA
     Route: 050
  4. CARBIDOPA\LEVODOPA [Suspect]
     Active Substance: CARBIDOPA\LEVODOPA
     Dosage: MD: 8.0ML, CD; 3.7ML/H, ED: 1.5ML, DURATION TEXT: REMAINS AT 24 HOURS
     Route: 050
     Dates: start: 20230110, end: 20230704
  5. CARBIDOPA\LEVODOPA [Suspect]
     Active Substance: CARBIDOPA\LEVODOPA
     Dosage: MD: 8.0ML; CD: 3.9ML/H; ED: 1.5ML
     Route: 050
     Dates: start: 20231211, end: 20231212
  6. CARBIDOPA\LEVODOPA [Suspect]
     Active Substance: CARBIDOPA\LEVODOPA
     Dosage: DURATION TEXT: REMAINS AT 24 HOURS
     Route: 050
     Dates: start: 20210823
  7. CARBIDOPA\LEVODOPA [Suspect]
     Active Substance: CARBIDOPA\LEVODOPA
     Dosage: MD: 8.0ML; CD: 3.7ML/H; ED: 1.5ML; CND: 2.1ML/H; END: 1.0ML, DURATION TEXT: REMAINS AT 24 HOURS
     Route: 050
     Dates: start: 20230704, end: 20231102
  8. CARBIDOPA\LEVODOPA [Suspect]
     Active Substance: CARBIDOPA\LEVODOPA
     Dosage: CND: 2.3ML/H, END: 1.00ML
     Route: 050
     Dates: start: 20231212, end: 20231212
  9. CARBIDOPA\LEVODOPA [Suspect]
     Active Substance: CARBIDOPA\LEVODOPA
     Dosage: DURATION TEXT: REMAINS AT 24 HOURS
     Route: 050
  10. VENLAFAXINE [Concomitant]
     Active Substance: VENLAFAXINE HYDROCHLORIDE
     Indication: Product used for unknown indication
     Dosage: FREQUENCY TEXT: ONE TIME ONE PIECE
     Route: 065
  11. BENSERAZIDE\LEVODOPA [Concomitant]
     Active Substance: BENSERAZIDE\LEVODOPA
     Indication: Product used for unknown indication
     Dosage: 100/25MG, FREQUENCY TEXT: ONE PER DAY, ONE MORE IF REQUIRED
     Route: 048
  12. CARBIDOPA\ENTACAPONE\LEVODOPA [Concomitant]
     Active Substance: CARBIDOPA\ENTACAPONE\LEVODOPA
     Indication: Product used for unknown indication
     Dosage: 150/37.5/200 MG
     Route: 048
  13. CARBIDOPA\ENTACAPONE\LEVODOPA [Concomitant]
     Active Substance: CARBIDOPA\ENTACAPONE\LEVODOPA
     Indication: Product used for unknown indication
     Dosage: 200/50/200MG
     Route: 048
  14. ROPINIROLE [Concomitant]
     Active Substance: ROPINIROLE
     Indication: Product used for unknown indication
  15. ROPINIROLE [Concomitant]
     Active Substance: ROPINIROLE
     Indication: Product used for unknown indication
     Dosage: SLOWED RELEASE?STOP DATE TEXT: POTENTIALLY DISCONTINUED

REACTIONS (47)
  - Stenosis [Recovered/Resolved]
  - Stoma site haemorrhage [Recovered/Resolved]
  - Freezing phenomenon [Not Recovered/Not Resolved]
  - Dystonia [Not Recovered/Not Resolved]
  - Stoma site discharge [Recovered/Resolved]
  - Muscle fatigue [Not Recovered/Not Resolved]
  - Gait disturbance [Not Recovered/Not Resolved]
  - Dizziness [Not Recovered/Not Resolved]
  - Parkinson^s disease [Not Recovered/Not Resolved]
  - Arthralgia [Not Recovered/Not Resolved]
  - Dizziness postural [Not Recovered/Not Resolved]
  - Fall [Recovered/Resolved]
  - Fibroma [Recovered/Resolved]
  - Loss of control of legs [Not Recovered/Not Resolved]
  - Hallucination, visual [Not Recovered/Not Resolved]
  - Stoma site reaction [Recovered/Resolved]
  - Fibroma [Not Recovered/Not Resolved]
  - Dyschezia [Recovering/Resolving]
  - Stoma site pain [Not Recovered/Not Resolved]
  - Paraesthesia [Not Recovered/Not Resolved]
  - Sleep deficit [Not Recovered/Not Resolved]
  - Communication disorder [Not Recovered/Not Resolved]
  - Therapeutic product effect variable [Recovered/Resolved]
  - On and off phenomenon [Not Recovered/Not Resolved]
  - Memory impairment [Not Recovered/Not Resolved]
  - Dyskinesia [Not Recovered/Not Resolved]
  - Pain [Recovered/Resolved]
  - Rectal tenesmus [Not Recovered/Not Resolved]
  - Abnormal faeces [Not Recovered/Not Resolved]
  - Nocturia [Not Recovered/Not Resolved]
  - Stress [Not Recovered/Not Resolved]
  - Tension [Not Recovered/Not Resolved]
  - Mood altered [Not Recovered/Not Resolved]
  - Infrequent bowel movements [Unknown]
  - Stoma site discharge [Not Recovered/Not Resolved]
  - Stoma site erythema [Unknown]
  - Medical device site dryness [Unknown]
  - Polyneuropathy [Not Recovered/Not Resolved]
  - Disturbance in attention [Not Recovered/Not Resolved]
  - Stoma site reaction [Not Recovered/Not Resolved]
  - Therapeutic product effect incomplete [Unknown]
  - Confusional state [Not Recovered/Not Resolved]
  - Cognitive disorder [Unknown]
  - Fall [Recovered/Resolved]
  - Skull fracture [Unknown]
  - Haemorrhage [Unknown]
  - Fall [Unknown]

NARRATIVE: CASE EVENT DATE: 20220801
